FAERS Safety Report 10029066 (Version 2)
Quarter: 2014Q2

REPORT INFORMATION
  Report Type: Spontaneous
  Country: US (occurrence: US)
  Receive Date: 20140321
  Receipt Date: 20140408
  Transmission Date: 20141212
  Serious: No
  Sender: FDA-Public Use
  Company Number: US-GILEAD-2014-0097195

PATIENT
  Age: 52 Year
  Sex: Male

DRUGS (4)
  1. SOVALDI [Suspect]
     Indication: PRODUCT USED FOR UNKNOWN INDICATION
     Dosage: UNK
     Route: 065
     Dates: start: 20140303
  2. VIREAD [Concomitant]
     Indication: HEPATITIS B
  3. PEGINTERFERON [Concomitant]
  4. RIBAVIRIN [Concomitant]

REACTIONS (2)
  - Headache [Unknown]
  - Fatigue [Unknown]
